FAERS Safety Report 6453469-5 (Version None)
Quarter: 2009Q4

REPORT INFORMATION
  Report Type: 
  Country: None (occurrence: None)
  Receive Date: 20091117
  Receipt Date: 20091103
  Transmission Date: 20100525
  Serious: Yes (Hospitalization)
  Sender: FDA-Public Use
  Company Number: 2009AL007101

PATIENT
  Age: 63 Year
  Sex: Male

DRUGS (12)
  1. METFORMIN HCL [Suspect]
     Indication: DIABETES MELLITUS
     Dosage: 500 MG; QD; PO
     Route: 048
     Dates: start: 20080220, end: 20091005
  2. DICLOFENAC SODIUM [Suspect]
     Indication: GOUT
     Dosage: 150 MG; QD; PO
     Route: 048
     Dates: start: 20080201, end: 20091005
  3. ENALAPRIL [Concomitant]
  4. CITALOPRAM HYDROBROMIDE [Concomitant]
  5. OMEPRAZOL ABCUR [Concomitant]
  6. NULYTELY [Concomitant]
  7. SIMVASTATIN [Concomitant]
  8. ACETAMINOPHEN [Concomitant]
  9. TAVEGYL [Concomitant]
  10. GLIBENKLAMID RECIP [Concomitant]
  11. ALLOPURINOL [Concomitant]
  12. TRADOLAN [Concomitant]

REACTIONS (8)
  - ANURIA [None]
  - BLOOD GLUCOSE DECREASED [None]
  - GOUT [None]
  - HAEMODIALYSIS [None]
  - HYPERKALAEMIA [None]
  - LACTIC ACIDOSIS [None]
  - OVERDOSE [None]
  - RENAL FAILURE ACUTE [None]
